FAERS Safety Report 9649235 (Version 3)
Quarter: 2014Q2

REPORT INFORMATION
  Report Type: Report from Study
  Country: DE (occurrence: DE)
  Receive Date: 20131028
  Receipt Date: 20140515
  Transmission Date: 20141212
  Serious: Yes (Hospitalization)
  Sender: FDA-Public Use
  Company Number: DE-009507513-1310DEU009641

PATIENT
  Age: 59 Year
  Sex: Male
  Weight: 78 kg

DRUGS (11)
  1. SIMVASTATIN [Suspect]
     Indication: ACUTE CORONARY SYNDROME
     Dosage: 40 MG, QD
     Route: 048
     Dates: start: 20080321
  2. PANTOZOL [Concomitant]
     Dosage: TOTAL DAILY DOSE 20MG
     Route: 048
     Dates: start: 20130315
  3. TOREM [Concomitant]
     Dosage: TOTAL DAILY DOSE 10MG
     Route: 048
     Dates: start: 20030101
  4. ALLOPURINOL [Concomitant]
     Dosage: TOTAL DAILY DOSE 300MG
     Route: 048
     Dates: start: 20110613
  5. CARMEN [Concomitant]
     Dosage: TOTAL DAILY DOSE 20MG
     Route: 048
     Dates: start: 20050101
  6. IBUPROFEN [Concomitant]
     Dosage: TOTAL DAILY DOSE 800MG, PRN
     Route: 048
     Dates: start: 20130315
  7. RAMIPRIL [Concomitant]
     Dosage: TOTAL DAILY DOSE 10MG
     Route: 048
     Dates: start: 20090220
  8. NITROLINGUAL [Concomitant]
     Dosage: TOTAL DAILY DOSE 2 HUBE, PRN
     Route: 060
     Dates: start: 20130315
  9. ASPIRIN [Concomitant]
     Dosage: TOTAL DAILY DOSE 100MG
     Route: 048
     Dates: start: 20030101
  10. METOPROLOL [Concomitant]
     Dosage: TOTAL DAILY DOSE 190MG
     Route: 048
     Dates: start: 20090220
  11. MOXONIDINE [Concomitant]
     Dosage: TOTAL DAILY DOSE 0.4MG
     Route: 048
     Dates: start: 20080911

REACTIONS (1)
  - Lung infiltration [Recovered/Resolved]
